FAERS Safety Report 7304341-X (Version None)
Quarter: 2011Q1

REPORT INFORMATION
  Report Type: 
  Country: None (occurrence: None)
  Receive Date: 20110221
  Receipt Date: 20110209
  Transmission Date: 20110831
  Serious: Yes (Other)
  Sender: FDA-Public Use
  Company Number: PHHY2010CA08786

PATIENT
  Sex: Female

DRUGS (2)
  1. SANDOSTATIN LAR [Suspect]
     Dosage: 20 MG EVERY 4 WEEKS
     Route: 030
     Dates: end: 20080827
  2. SANDOSTATIN LAR [Suspect]
     Indication: CARCINOID TUMOUR
     Dosage: 20 MG, QMO
     Route: 030
     Dates: start: 20060220

REACTIONS (5)
  - ALOPECIA [None]
  - INJECTION SITE INDURATION [None]
  - GASTROENTERITIS [None]
  - BLOOD PRESSURE SYSTOLIC INCREASED [None]
  - INFLUENZA [None]
